FAERS Safety Report 17246223 (Version 5)
Quarter: 2021Q3

REPORT INFORMATION
  Report Type: Spontaneous
  Country: US (occurrence: US)
  Receive Date: 20200108
  Receipt Date: 20210803
  Transmission Date: 20211014
  Serious: Yes (Death, Hospitalization, Other)
  Sender: FDA-Public Use
  Company Number: US-PFIZER INC-2019247153

PATIENT
  Age: 77 Year
  Sex: Male
  Weight: 101.6 kg

DRUGS (11)
  1. VFEND [Suspect]
     Active Substance: VORICONAZOLE
     Dosage: 200 MG, 1 TABLET EVERY MORNING
     Route: 048
  2. VFEND [Suspect]
     Active Substance: VORICONAZOLE
     Dosage: 200 MG, ONCE A DAY
  3. ACYCLOVIR [ACICLOVIR] [Concomitant]
     Active Substance: ACYCLOVIR
     Dosage: 400 MG, 2X/DAY
  4. PROPRANOLOL [Concomitant]
     Active Substance: PROPRANOLOL HYDROCHLORIDE
     Dosage: 20 MG, 2X/DAY
  5. VFEND [Suspect]
     Active Substance: VORICONAZOLE
     Dosage: 200 MG, DAILY (1 TIME A DAY)
     Route: 048
  6. IRON FERROUS SULFATE [Concomitant]
     Active Substance: FERROUS SULFATE
     Dosage: 65 MG, 1X/DAY
  7. SPIRONOLACTONE. [Concomitant]
     Active Substance: SPIRONOLACTONE
     Dosage: 50 MG, 1X/DAY
  8. VITAMIN B12 [Concomitant]
     Active Substance: CYANOCOBALAMIN
     Dosage: 1000 MG, 1X/DAY
  9. VFEND [Suspect]
     Active Substance: VORICONAZOLE
     Indication: MYELODYSPLASTIC SYNDROME
     Dosage: 200 MG, DAILY
     Route: 048
     Dates: start: 2017
  10. GLIPIZIDE. [Concomitant]
     Active Substance: GLIPIZIDE
     Dosage: 2.5 MG, 2X/DAY
  11. LEVOFLOXACIN. [Concomitant]
     Active Substance: LEVOFLOXACIN
     Dosage: 500 MG, 1X/DAY

REACTIONS (4)
  - Fall [Not Recovered/Not Resolved]
  - Off label use [Unknown]
  - Death [Fatal]
  - Joint injury [Not Recovered/Not Resolved]

NARRATIVE: CASE EVENT DATE: 2017
